FAERS Safety Report 8329177-2 (Version None)
Quarter: 2012Q2

REPORT INFORMATION
  Report Type: 
  Country: None (occurrence: None)
  Receive Date: 20120502
  Receipt Date: 20120421
  Transmission Date: 20120825
  Serious: Yes (Hospitalization)
  Sender: FDA-Public Use
  Company Number: CA-JNJFOC-20120410290

PATIENT
  Sex: Male
  Weight: 60 kg

DRUGS (3)
  1. REMICADE [Suspect]
     Indication: CROHN'S DISEASE
     Route: 042
  2. LOVENOX [Concomitant]
     Route: 065
  3. COUMADIN [Concomitant]
     Route: 065

REACTIONS (1)
  - PULMONARY EMBOLISM [None]
